FAERS Safety Report 4516600-4 (Version None)
Quarter: 2004Q4

REPORT INFORMATION
  Report Type: 
  Country: None (occurrence: None)
  Receive Date: 20041202
  Receipt Date: 20041129
  Transmission Date: 20050328
  Serious: Yes (Disabling)
  Sender: FDA-Public Use
  Company Number: NSADSS2002023022

PATIENT
  Age: 76 Year
  Sex: Female
  Weight: 70.31 kg

DRUGS (1)
  1. FLOXIN [Suspect]
     Route: 049
     Dates: start: 20020115

REACTIONS (7)
  - EAR PAIN [None]
  - EYE PAIN [None]
  - HEADACHE [None]
  - HEART INJURY [None]
  - MYALGIA [None]
  - NIGHT SWEATS [None]
  - NIGHTMARE [None]
